FAERS Safety Report 10503924 (Version 1)
Quarter: 2014Q4

REPORT INFORMATION
  Report Type: Spontaneous
  Country: US (occurrence: None)
  Receive Date: 20141007
  Receipt Date: 20141007
  Transmission Date: 20150528
  Serious: Yes (Hospitalization)
  Sender: FDA-Public Use
  Company Number: None

PATIENT
  Age: 66 Year
  Sex: Male
  Weight: 79.38 kg

DRUGS (1)
  1. CIPROFLOXACIN. [Suspect]
     Active Substance: CIPROFLOXACIN
     Dosage: 1PILL TWICE DAILY TAKEN BY MOUTH
     Route: 048

REACTIONS (13)
  - Lung disorder [None]
  - Diplegia [None]
  - Diarrhoea [None]
  - Dysuria [None]
  - Renal disorder [None]
  - Muscular weakness [None]
  - Vision blurred [None]
  - Deafness [None]
  - Oedema peripheral [None]
  - Dizziness [None]
  - Heart rate irregular [None]
  - Photosensitivity reaction [None]
  - Seizure [None]

NARRATIVE: CASE EVENT DATE: 20140623
